FAERS Safety Report 9804037 (Version 1)
Quarter: 2014Q1

REPORT INFORMATION
  Report Type: Spontaneous
  Country: US (occurrence: None)
  Receive Date: 20140103
  Receipt Date: 20140103
  Transmission Date: 20141002
  Serious: Yes (Congenital Anomaly)
  Sender: FDA-Public Use
  Company Number: 2013HINOTH0366

PATIENT
  Sex: Male
  Weight: 1.9 kg

DRUGS (4)
  1. LAMIVUDINE [Suspect]
     Indication: ANTIRETROVIRAL THERAPY
     Route: 048
     Dates: start: 20121108
  2. TENOFOVIR (TENOFOVIR) UNKNOWN [Suspect]
     Indication: ANTIRETROVIRAL THERAPY
     Route: 048
     Dates: start: 20121108
  3. KALETRA [Concomitant]
  4. ETRAVIRINE (INTELENCE) [Concomitant]

REACTIONS (4)
  - Neonatal respiratory distress syndrome [None]
  - Premature baby [None]
  - Congenital anomaly [None]
  - Maternal drugs affecting foetus [None]
